FAERS Safety Report 8599279-4 (Version None)
Quarter: 2012Q3

REPORT INFORMATION
  Report Type: 
  Country: None (occurrence: None)
  Receive Date: 20120816
  Receipt Date: 20120613
  Transmission Date: 20120928
  Serious: No
  Sender: FDA-Public Use
  Company Number: US-AMGEN-USASP2012036827

PATIENT
  Sex: Female

DRUGS (4)
  1. NEUPOGEN [Suspect]
     Indication: CHEMOTHERAPY
     Dosage: UNK UNK, AFTER CHEMO
     Dates: start: 20120525
  2. HERCEPTIN [Concomitant]
     Dosage: UNK
  3. TAXOTERE [Concomitant]
     Dosage: UNK
  4. CARBOPLATIN [Concomitant]
     Dosage: UNK

REACTIONS (1)
  - PAIN [None]
